FAERS Safety Report 10043248 (Version 1)
Quarter: 2014Q1

REPORT INFORMATION
  Report Type: Spontaneous
  Country: US (occurrence: None)
  Receive Date: 20140327
  Receipt Date: 20140327
  Transmission Date: 20141002
  Serious: No
  Sender: FDA-Public Use
  Company Number: None

PATIENT
  Age: 81 Year
  Sex: Female
  Weight: 74.84 kg

DRUGS (4)
  1. EVISTA [Suspect]
     Indication: OSTEOPOROSIS
     Route: 048
     Dates: start: 20140210, end: 20140224
  2. ATIVAN [Concomitant]
  3. CALCIUM D [Concomitant]
  4. MUCINEX [Concomitant]

REACTIONS (8)
  - Visual impairment [None]
  - Arthralgia [None]
  - Pain in extremity [None]
  - Fall [None]
  - Hyperhidrosis [None]
  - Lacrimation increased [None]
  - Visual impairment [None]
  - Psychiatric symptom [None]
